FAERS Safety Report 16204327 (Version 4)
Quarter: 2019Q2

REPORT INFORMATION
  Report Type: Report from Study
  Country: BE (occurrence: BE)
  Receive Date: 20190416
  Receipt Date: 20190507
  Transmission Date: 20190711
  Serious: Yes (Death, Hospitalization, Other)
  Sender: FDA-Public Use
  Company Number: PHHY2014BE101053

PATIENT
  Age: 51 Year
  Sex: Male
  Weight: 84 kg

DRUGS (3)
  1. VITAMIN D2 [Concomitant]
     Active Substance: ERGOCALCIFEROL
     Indication: PROPHYLAXIS
     Dosage: UNK
     Route: 065
     Dates: start: 20131127
  2. GILENYA [Suspect]
     Active Substance: FINGOLIMOD HYDROCHLORIDE
     Indication: MULTIPLE SCLEROSIS
     Dosage: 0.5 MG, QD
     Route: 048
     Dates: start: 20130731, end: 20150717
  3. RIVOTRIL [Concomitant]
     Active Substance: CLONAZEPAM
     Indication: MULTIPLE SCLEROSIS
     Dosage: UNK
     Route: 065
     Dates: start: 20141203

REACTIONS (21)
  - C-reactive protein increased [Unknown]
  - Urinary bladder polyp [Recovered/Resolved]
  - Periarthritis [Unknown]
  - Urinary tract infection [Recovered/Resolved]
  - Constipation [Unknown]
  - Metastasis [Not Recovered/Not Resolved]
  - Pancytopenia [Recovering/Resolving]
  - Laryngeal oedema [Unknown]
  - Dysphonia [Unknown]
  - Neoplasm malignant [Fatal]
  - Bladder adenocarcinoma recurrent [Not Recovered/Not Resolved]
  - Wound abscess [Unknown]
  - White blood cells urine positive [Unknown]
  - Urinary tract infection [Recovered/Resolved]
  - Diabetes mellitus [Not Recovered/Not Resolved]
  - Bladder adenocarcinoma stage unspecified [Recovered/Resolved]
  - Sepsis [Recovered/Resolved]
  - Sepsis [Recovered/Resolved]
  - Secondary progressive multiple sclerosis [Unknown]
  - Upper respiratory tract infection [Recovered/Resolved]
  - Wound infection [Unknown]

NARRATIVE: CASE EVENT DATE: 20140812
